FAERS Safety Report 8791046 (Version 1)
Quarter: 2012Q4

REPORT INFORMATION
  Report Type: Spontaneous
  Country: KR (occurrence: None)
  Receive Date: 20120910
  Receipt Date: 20120910
  Transmission Date: 20130627
  Serious: Yes (Hospitalization, Other)
  Sender: FDA-Public Use
  Company Number: 2012P1055687

PATIENT
  Age: 54 Year
  Sex: Male

DRUGS (5)
  1. CILOSTAZOL [Suspect]
     Indication: ANTIPLATELET THERAPY
  2. CARBAMAZEPINE [Suspect]
     Indication: NEUROPATHY PERIPHERAL
  3. ASPIRIN [Concomitant]
  4. CLOPIDOGREL [Concomitant]
  5. CORTICOSTEROIDS/LONG-ACTING B-AGNOIST COMBINATION [Concomitant]

REACTIONS (4)
  - Drug interaction [None]
  - Myalgia [None]
  - Hepatitis [None]
  - Drug reaction with eosinophilia and systemic symptoms [None]
